FAERS Safety Report 10642965 (Version 1)
Quarter: 2014Q4

REPORT INFORMATION
  Report Type: Spontaneous
  Country: US (occurrence: US)
  Receive Date: 20141210
  Receipt Date: 20141210
  Transmission Date: 20150529
  Serious: No
  Sender: FDA-Public Use
  Company Number: US-009507513-1411USA012219

PATIENT
  Age: 84 Year
  Sex: Female

DRUGS (1)
  1. ASMANEX [Suspect]
     Active Substance: MOMETASONE FUROATE
     Indication: ASTHMA
     Dosage: ONE ORAL INHALATION 3 OR 4 TIMES A WEEK
     Route: 055

REACTIONS (4)
  - Device malfunction [Unknown]
  - Sneezing [Recovered/Resolved]
  - Drug dose omission [Recovered/Resolved]
  - Cough [Recovered/Resolved]

NARRATIVE: CASE EVENT DATE: 20141115
